FAERS Safety Report 4427333-7 (Version None)
Quarter: 2004Q3

REPORT INFORMATION
  Report Type: 
  Country: None (occurrence: None)
  Receive Date: 20040812
  Receipt Date: 20040803
  Transmission Date: 20050211
  Serious: Yes (Hospitalization)
  Sender: FDA-Public Use
  Company Number: 2004227007JP

PATIENT

DRUGS (1)
  1. CABERGOLINE [Suspect]
     Dosage: ORAL
     Route: 048

REACTIONS (3)
  - AMMONIA INCREASED [None]
  - DEPRESSED LEVEL OF CONSCIOUSNESS [None]
  - DYSKINESIA [None]
